FAERS Safety Report 6164231-5 (Version None)
Quarter: 2009Q2

REPORT INFORMATION
  Report Type: 
  Country: None (occurrence: None)
  Receive Date: 20090422
  Receipt Date: 20090414
  Transmission Date: 20091009
  Serious: Yes (Hospitalization)
  Sender: FDA-Public Use
  Company Number: FR-BAXTER-2009BH004795

PATIENT
  Age: 26 Year
  Sex: Male

DRUGS (7)
  1. UROMITEXAN BAXTER [Suspect]
     Indication: BONE SARCOMA
     Route: 065
     Dates: start: 20000101
  2. HOLOXAN BAXTER [Suspect]
     Indication: BONE SARCOMA
     Dosage: DOSE UNIT:GRAMS PER METERS SQUARED
     Route: 042
     Dates: start: 20000101, end: 20000701
  3. CISPLATIN [Suspect]
     Indication: BONE SARCOMA
     Route: 042
     Dates: start: 20000101, end: 20000701
  4. ADRIAMYCIN RDF [Suspect]
     Indication: BONE SARCOMA
     Route: 042
     Dates: start: 20000101, end: 20000701
  5. IODINE [Suspect]
     Indication: COMPUTERISED TOMOGRAM
  6. GADOLINIUM [Suspect]
     Indication: NUCLEAR MAGNETIC RESONANCE IMAGING
  7. TAREG [Concomitant]
     Indication: DRUG USE FOR UNKNOWN INDICATION
     Route: 065

REACTIONS (4)
  - BLOOD CREATININE INCREASED [None]
  - GLOMERULOSCLEROSIS [None]
  - RENAL FAILURE [None]
  - RENAL TUBULAR ATROPHY [None]
